FAERS Safety Report 4567765-X (Version None)
Quarter: 2005Q1

REPORT INFORMATION
  Report Type: 
  Country: None (occurrence: None)
  Receive Date: 20050202
  Receipt Date: 20050112
  Transmission Date: 20050727
  Serious: Yes (Hospitalization)
  Sender: FDA-Public Use
  Company Number: 200510069EU

PATIENT
  Age: 69 Year
  Sex: Male

DRUGS (4)
  1. TAXOTERE [Suspect]
     Indication: PROSTATE CANCER
     Route: 042
  2. RISEDRONATE [Suspect]
     Indication: PROSTATE CANCER
     Route: 048
  3. PANTOZOL [Concomitant]
     Indication: DRUG USE FOR UNKNOWN INDICATION
     Route: 048
     Dates: start: 20041118
  4. SUCRALFATE [Concomitant]
     Indication: DRUG USE FOR UNKNOWN INDICATION
     Route: 048
     Dates: start: 20041118

REACTIONS (3)
  - DYSPEPSIA [None]
  - NAUSEA [None]
  - VOMITING [None]
